FAERS Safety Report 19155002 (Version 1)
Quarter: 2021Q2

REPORT INFORMATION
  Report Type: Spontaneous
  Country: IN (occurrence: IN)
  Receive Date: 20210419
  Receipt Date: 20210419
  Transmission Date: 20210717
  Serious: Yes (Death)
  Sender: FDA-Public Use
  Company Number: IN-PFIZER INC-2020279438

PATIENT
  Age: 70 Year
  Sex: Female

DRUGS (1)
  1. PALBACE [Suspect]
     Active Substance: PALBOCICLIB
     Indication: BREAST CANCER METASTATIC
     Dosage: 125 MG, 1X/DAY (1?21, 7 DAYS OFF)
     Route: 048
     Dates: start: 20180503, end: 20200901

REACTIONS (2)
  - Neoplasm progression [Unknown]
  - Death [Fatal]
